FAERS Safety Report 17221938 (Version 4)
Quarter: 2020Q2

REPORT INFORMATION
  Report Type: Spontaneous
  Country: DE (occurrence: DE)
  Receive Date: 20200101
  Receipt Date: 20200420
  Transmission Date: 20200713
  Serious: Yes (Other)
  Sender: FDA-Public Use
  Company Number: DE-TORRENT-00016405

PATIENT
  Age: 27 Year
  Sex: Female

DRUGS (3)
  1. BRIVARACETAM [Interacting]
     Active Substance: BRIVARACETAM
     Indication: PARTIAL SEIZURES
     Dosage: DOSE REDUCED TO 100 MG DAILY
  2. CARBAMAZEPINE. [Suspect]
     Active Substance: CARBAMAZEPINE
     Indication: PARTIAL SEIZURES
  3. LEVETIRACETAM. [Concomitant]
     Active Substance: LEVETIRACETAM
     Indication: PARTIAL SEIZURES
     Dosage: 2000 MILLIGRAM DAILY

REACTIONS (9)
  - Nausea [Recovered/Resolved]
  - Drug interaction [Unknown]
  - Toxicity to various agents [Recovered/Resolved]
  - Dizziness [Unknown]
  - Nystagmus [Recovered/Resolved]
  - Drug ineffective [Unknown]
  - Fatigue [Unknown]
  - Drug level increased [Recovered/Resolved]
  - Drug intolerance [Recovered/Resolved]
